FAERS Safety Report 5704995-5 (Version None)
Quarter: 2008Q2

REPORT INFORMATION
  Report Type: 
  Country: None (occurrence: None)
  Receive Date: 20080414
  Receipt Date: 20080401
  Transmission Date: 20081010
  Serious: Yes (Other)
  Sender: FDA-Public Use
  Company Number: ZA-BOEHRINGER INGELHEIM GMBH, GERMANY-2008-DE-01938GD

PATIENT
  Sex: Female

DRUGS (2)
  1. NEVIRAPINE [Suspect]
     Indication: HIV INFECTION
  2. ANTI-HIV AGENTS [Concomitant]
     Indication: HIV INFECTION

REACTIONS (1)
  - AUTOIMMUNE HEPATITIS [None]
